FAERS Safety Report 8880622 (Version 3)
Quarter: 2012Q4

REPORT INFORMATION
  Report Type: 
  Country: CA (occurrence: CA)
  Receive Date: 20121031
  Receipt Date: 20121203
  Transmission Date: 20130627
  Serious: Yes (Life-Threatening, Hospitalization, Other)
  Sender: FDA-Public Use
  Company Number: CA-ROCHE-1150148

PATIENT
  Age: 65 Year
  Sex: Male

DRUGS (16)
  1. XOLAIR [Suspect]
     Indication: ASTHMA
     Route: 058
     Dates: start: 20120502, end: 20120829
  2. VENTOLIN [Concomitant]
  3. ADVAIR [Concomitant]
  4. DAXAS [Concomitant]
  5. PREDNISONE [Concomitant]
  6. SPIRIVA [Concomitant]
  7. PERINDOPRIL [Concomitant]
  8. SALBUTAMOL [Concomitant]
  9. LAMISIL [Concomitant]
  10. PANTOPRAZOLE [Concomitant]
  11. ROSUVASTATIN [Concomitant]
  12. METFORMIN [Concomitant]
  13. CELEBREX [Concomitant]
  14. RABEPRAZOLE [Concomitant]
  15. ALENDRONATE [Concomitant]
  16. METHOTREXATE [Concomitant]

REACTIONS (2)
  - Pulmonary embolism [Recovered/Resolved with Sequelae]
  - Hypoxia [Unknown]
